FAERS Safety Report 13331192 (Version 1)
Quarter: 2017Q1

REPORT INFORMATION
  Report Type: Spontaneous
  Country: US (occurrence: US)
  Receive Date: 20170314
  Receipt Date: 20170314
  Transmission Date: 20170428
  Serious: Yes (Other)
  Sender: FDA-Public Use
  Company Number: US-ROCHE-1900165

PATIENT
  Sex: Female
  Weight: 67.65 kg

DRUGS (3)
  1. PREMARIN [Suspect]
     Active Substance: ESTROGENS, CONJUGATED
     Indication: VULVOVAGINAL DRYNESS
     Route: 065
     Dates: start: 201702
  2. KLONOPIN [Suspect]
     Active Substance: CLONAZEPAM
     Indication: ESSENTIAL TREMOR
     Route: 065
     Dates: start: 2008
  3. PREMARIN [Suspect]
     Active Substance: ESTROGENS, CONJUGATED
     Indication: SKIN ATROPHY

REACTIONS (7)
  - Skin atrophy [Unknown]
  - Wrong technique in product usage process [Unknown]
  - Barrett^s oesophagus [Unknown]
  - Inappropriate schedule of drug administration [Unknown]
  - Vulvovaginal dryness [Unknown]
  - Thrombosis [Unknown]
  - Heart rate irregular [Unknown]
